FAERS Safety Report 9450154 (Version 1)
Quarter: 2013Q3

REPORT INFORMATION
  Report Type: Spontaneous
  Country: US (occurrence: US)
  Receive Date: 20130809
  Receipt Date: 20130809
  Transmission Date: 20140515
  Serious: No
  Sender: FDA-Public Use
  Company Number: US-009507513-1308USA004222

PATIENT
  Age: 56 Year
  Sex: Female
  Weight: 145 kg

DRUGS (2)
  1. CLARITIN-D [Suspect]
     Indication: PRODUCT USED FOR UNKNOWN INDICATION
     Dosage: 5 MG, ONCE
     Route: 048
     Dates: start: 20130603, end: 20130604
  2. CLARITIN-D [Suspect]
     Indication: HYPERSENSITIVITY

REACTIONS (2)
  - Psychomotor hyperactivity [Recovered/Resolved]
  - Insomnia [Recovered/Resolved]
